FAERS Safety Report 25131329 (Version 1)
Quarter: 2025Q1

REPORT INFORMATION
  Report Type: Other
  Country: DE (occurrence: DE)
  Receive Date: 20250327
  Receipt Date: 20250327
  Transmission Date: 20250409
  Serious: Yes (Hospitalization)
  Sender: LYNE LABORATORIES
  Company Number: DE-Lyne Laboratories Inc.-2173781

PATIENT
  Age: 57 Year
  Sex: Male

DRUGS (9)
  1. TRIAMCINOLONE ACETONIDE [Suspect]
     Active Substance: TRIAMCINOLONE ACETONIDE
     Indication: Pachymeningitis
  2. PREDNISOLONE [Suspect]
     Active Substance: PREDNISOLONE
  3. RITUXIMAB [Concomitant]
     Active Substance: RITUXIMAB
  4. CYTARABINE [Concomitant]
     Active Substance: CYTARABINE
  5. MYCOPHENOLATE MOFETIL [Concomitant]
     Active Substance: MYCOPHENOLATE MOFETIL
  6. METHOTREXATE [Concomitant]
     Active Substance: METHOTREXATE
  7. INFLIXIMAB [Concomitant]
     Active Substance: INFLIXIMAB
  8. DEXAMETHASONE [Suspect]
     Active Substance: DEXAMETHASONE
  9. METHYLPREDNISOLONE [Suspect]
     Active Substance: METHYLPREDNISOLONE

REACTIONS (2)
  - Psychotic disorder [Recovering/Resolving]
  - Product use in unapproved indication [Unknown]
